FAERS Safety Report 18405168 (Version 1)
Quarter: 2020Q4

REPORT INFORMATION
  Report Type: Spontaneous
  Country: CN (occurrence: CN)
  Receive Date: 20201020
  Receipt Date: 20201020
  Transmission Date: 20210114
  Serious: Yes (Hospitalization)
  Sender: FDA-Public Use
  Company Number: CN-ASTRAZENECA-2020SF34221

PATIENT
  Sex: Female
  Weight: 72 kg

DRUGS (1)
  1. FORXIGA [Suspect]
     Active Substance: DAPAGLIFLOZIN
     Indication: HYPOGLYCAEMIA
     Route: 048
     Dates: start: 20200901, end: 20200902

REACTIONS (1)
  - Diabetic ketoacidosis [Unknown]
